FAERS Safety Report 5962161-2 (Version None)
Quarter: 2008Q4

REPORT INFORMATION
  Report Type: 
  Country: None (occurrence: None)
  Receive Date: 20081121
  Receipt Date: 20081118
  Transmission Date: 20090506
  Serious: Yes (Life-Threatening, Hospitalization, Other)
  Sender: FDA-Public Use
  Company Number: US-ASTRAZENECA-2008UW25920

PATIENT
  Age: 64 Year
  Sex: Female
  Weight: 53.5 kg

DRUGS (12)
  1. ARIMIDEX [Suspect]
     Indication: BREAST CANCER
     Route: 048
     Dates: start: 20070601
  2. FORTEO [Concomitant]
  3. LEVOTHROID [Concomitant]
  4. BUTALBITAL [Concomitant]
  5. DARVOCET [Concomitant]
  6. OMEPRAZOLE [Concomitant]
  7. VITAMINS [Concomitant]
  8. FOLIC ACID [Concomitant]
  9. GLUCOSAMINE/CHONDROITIN [Concomitant]
  10. CO-Q10 [Concomitant]
  11. CRANBERRY [Concomitant]
  12. PAXIL [Concomitant]

REACTIONS (11)
  - ANAEMIA [None]
  - APPARENT DEATH [None]
  - ARTHRALGIA [None]
  - DEHYDRATION [None]
  - INFECTION [None]
  - OSTEOPOROSIS [None]
  - PAIN IN EXTREMITY [None]
  - ULCER HAEMORRHAGE [None]
  - URINARY TRACT INFECTION [None]
  - VAGINAL LACERATION [None]
  - VULVOVAGINAL DRYNESS [None]
